FAERS Safety Report 5299286-3 (Version None)
Quarter: 2007Q2

REPORT INFORMATION
  Report Type: 
  Country: None (occurrence: None)
  Receive Date: 20070417
  Receipt Date: 20070410
  Transmission Date: 20071010
  Serious: Yes (Death, Other)
  Sender: FDA-Public Use
  Company Number: CH-MERCK-0703CHE00005

PATIENT
  Age: 0 Day

DRUGS (1)
  1. NOROXIN [Suspect]
     Indication: GENITOURINARY TRACT INFECTION
     Route: 064
     Dates: start: 20051201, end: 20051209

REACTIONS (1)
  - INTRA-UTERINE DEATH [None]
